FAERS Safety Report 8266317-8 (Version None)
Quarter: 2012Q1

REPORT INFORMATION
  Report Type: 
  Country: None (occurrence: None)
  Receive Date: 20120327
  Receipt Date: 20091124
  Transmission Date: 20120608
  Serious: Yes (Hospitalization)
  Sender: FDA-Public Use
  Company Number: PHEH2009US11252

PATIENT
  Age: 84 Year
  Sex: Female
  Weight: 40.3701 kg

DRUGS (4)
  1. MEGACE [Concomitant]
  2. STEROIDS NOS (NO INGREDIENTS/ SUBSTANCES) [Concomitant]
  3. GLEEVEC [Suspect]
     Indication: GASTROINTESTINAL STROMAL TUMOUR
     Dosage: 200 MG, QD, ORAL
     Route: 048
     Dates: start: 20090527
  4. BLOOD TRANSFUSION, AUXILIARY PRODUCTS (NO INGREDIENTS/ SUBSTANCES) [Concomitant]

REACTIONS (3)
  - DYSPNOEA [None]
  - FLUID OVERLOAD [None]
  - DEEP VEIN THROMBOSIS [None]
